FAERS Safety Report 4768714-1 (Version None)
Quarter: 2005Q3

REPORT INFORMATION
  Report Type: 
  Country: None (occurrence: None)
  Receive Date: 20050914
  Receipt Date: 20050909
  Transmission Date: 20060218
  Serious: Yes (Other)
  Sender: FDA-Public Use
  Company Number: US-GLAXOSMITHKLINE-A0573580A

PATIENT
  Age: 48 Year
  Sex: Female

DRUGS (5)
  1. AMOXIL [Suspect]
     Indication: TOOTH ABSCESS
     Dosage: 500MG THREE TIMES PER DAY
     Route: 048
  2. THYROID TAB [Concomitant]
  3. ADVAIR DISKUS 100/50 [Concomitant]
  4. ASTELIN [Concomitant]
  5. ZYRTEC [Concomitant]

REACTIONS (4)
  - DYSPNOEA [None]
  - FALL [None]
  - HYPERSENSITIVITY [None]
  - SYNCOPE [None]
